FAERS Safety Report 9154916 (Version 1)
Quarter: 2013Q1

REPORT INFORMATION
  Report Type: Spontaneous
  Country: US (occurrence: None)
  Receive Date: 20130205
  Receipt Date: 20130205
  Transmission Date: 20140127
  Serious: Yes (Other)
  Sender: FDA-Public Use
  Company Number: ICP201301-000013

PATIENT
  Age: 66 Year
  Sex: Male

DRUGS (3)
  1. AMLODIPINE BESILATE [Suspect]
  2. ATENOLOL (ATENOLOL) (ATENOLOL) [Suspect]
  3. ENALAPRIL [Suspect]

REACTIONS (1)
  - Pseudolymphoma [None]
